FAERS Safety Report 10143130 (Version 2)
Quarter: 2014Q2

REPORT INFORMATION
  Report Type: Report from Study
  Country: JP (occurrence: JP)
  Receive Date: 20140430
  Receipt Date: 20140430
  Transmission Date: 20141212
  Serious: Yes (Death)
  Sender: FDA-Public Use
  Company Number: JP-SA-THYM-1002573

PATIENT
  Sex: Female
  Weight: 71 kg

DRUGS (1)
  1. ANTI-THYMOCYTE GLOBULIN (RABBIT) [Suspect]
     Indication: BONE MARROW CONDITIONING REGIMEN
     Dosage: 125 MG/DAY, QD DOSE:125 MILLIGRAM(S)/24 HOURS
     Route: 042
     Dates: start: 20100816, end: 20100819

REACTIONS (1)
  - Acute lymphocytic leukaemia [Fatal]
